FAERS Safety Report 6202877-6 (Version None)
Quarter: 2009Q2

REPORT INFORMATION
  Report Type: 
  Country: None (occurrence: None)
  Receive Date: 20090526
  Receipt Date: 20090519
  Transmission Date: 20091009
  Serious: Yes (Other)
  Sender: FDA-Public Use
  Company Number: GB-JNJCH-2009014080

PATIENT
  Age: 30 Year
  Sex: Female

DRUGS (1)
  1. NICORETTE [Suspect]
     Indication: SMOKING CESSATION THERAPY
     Dosage: TEXT:UNSPECIFIED
     Route: 062

REACTIONS (4)
  - AGGRESSION [None]
  - ANGER [None]
  - FEELING ABNORMAL [None]
  - MOOD ALTERED [None]
